FAERS Safety Report 22271311 (Version 2)
Quarter: 2023Q2

REPORT INFORMATION
  Report Type: Report from Study
  Country: US (occurrence: US)
  Receive Date: 20230501
  Receipt Date: 20230510
  Transmission Date: 20230722
  Serious: Yes (Hospitalization)
  Sender: FDA-Public Use
  Company Number: US-ABBVIE-4740061

PATIENT
  Age: 15 Month
  Sex: Female
  Weight: 8.2 kg

DRUGS (9)
  1. VENETOCLAX [Suspect]
     Active Substance: VENETOCLAX
     Indication: Acute myeloid leukaemia
     Route: 048
     Dates: start: 20230415
  2. DECITABINE [Concomitant]
     Active Substance: DECITABINE
     Indication: Acute myeloid leukaemia
     Route: 042
     Dates: start: 20230410, end: 20230414
  3. POSACONAZOLE [Concomitant]
     Active Substance: POSACONAZOLE
     Indication: Candida infection
     Route: 042
     Dates: start: 20230303, end: 20230430
  4. POSACONAZOLE [Concomitant]
     Active Substance: POSACONAZOLE
     Indication: Candida infection
     Dosage: 160MG/ DAILY (ORAL SUSPENSION), PO/NG
     Route: 050
     Dates: start: 20230501, end: 20230502
  5. POSACONAZOLE [Concomitant]
     Active Substance: POSACONAZOLE
     Indication: Candida infection
     Dosage: 200MG/DAILY (EXTENDED RELEASE TABLETS),  PO/NG
     Route: 050
     Dates: start: 20230502
  6. ACYCLOVIR [Concomitant]
     Active Substance: ACYCLOVIR
     Indication: Herpes simplex test positive
     Dosage: 400 MG/ DAILY PO/NG
     Route: 050
     Dates: start: 20230114
  7. ATOVAQUONE [Concomitant]
     Active Substance: ATOVAQUONE
     Indication: Antifungal prophylaxis
     Route: 050
     Dates: start: 20230104
  8. LEVETIRACETAM [Concomitant]
     Active Substance: LEVETIRACETAM
     Indication: Seizure prophylaxis
     Route: 012
     Dates: start: 20221219
  9. FAMOTIDINE [Concomitant]
     Active Substance: FAMOTIDINE
     Indication: Gastrooesophageal reflux disease
     Route: 050
     Dates: start: 20221219

REACTIONS (1)
  - Bacteraemia [Recovering/Resolving]

NARRATIVE: CASE EVENT DATE: 20230422
